FAERS Safety Report 15707478 (Version 1)
Quarter: 2018Q4

REPORT INFORMATION
  Report Type: Other
  Country: PL (occurrence: PL)
  Receive Date: 20181211
  Receipt Date: 20181211
  Transmission Date: 20190205
  Serious: Yes (Other)
  Sender: FDA-Public Use
  Company Number: PL-APOTEX-2018AP025943

PATIENT
  Age: 28 Year
  Sex: Female

DRUGS (13)
  1. QUETIAPINE. [Suspect]
     Active Substance: QUETIAPINE
     Indication: DEPRESSION
     Dosage: 150 MG
     Route: 065
  2. QUETIAPINE. [Suspect]
     Active Substance: QUETIAPINE
     Indication: PERSONALITY DISORDER
  3. DULOXETINE HYDROCHLORIDE. [Suspect]
     Active Substance: DULOXETINE HYDROCHLORIDE
     Indication: PRODUCT USED FOR UNKNOWN INDICATION
     Dosage: 60 MG, QD
     Route: 065
  4. CARBAMAZEPINE. [Suspect]
     Active Substance: CARBAMAZEPINE
     Indication: FIBROMYALGIA
     Dosage: 400 MG
     Route: 065
  5. CARBAMAZEPINE. [Suspect]
     Active Substance: CARBAMAZEPINE
     Indication: PERSONALITY DISORDER
  6. VALPROATE SODIUM. [Suspect]
     Active Substance: VALPROATE SODIUM
     Indication: MAJOR DEPRESSION
     Dosage: 300 MG
     Route: 065
  7. DOXEPIN [Concomitant]
     Active Substance: DOXEPIN
     Indication: PRODUCT USED FOR UNKNOWN INDICATION
     Route: 065
  8. OLANZAPINE. [Suspect]
     Active Substance: OLANZAPINE
     Indication: MAJOR DEPRESSION
     Dosage: 10 MG, QD
     Route: 065
  9. PREGABALIN. [Suspect]
     Active Substance: PREGABALIN
     Indication: FIBROMYALGIA
  10. QUETIAPINE. [Suspect]
     Active Substance: QUETIAPINE
     Indication: FIBROMYALGIA
  11. VENLAFAXINE [Suspect]
     Active Substance: VENLAFAXINE HYDROCHLORIDE
     Indication: MAJOR DEPRESSION
     Dosage: 225 MG, QD
     Route: 065
  12. DULOXETINE HYDROCHLORIDE. [Suspect]
     Active Substance: DULOXETINE HYDROCHLORIDE
     Dosage: 50 MG, QD
     Route: 065
  13. PREGABALIN. [Suspect]
     Active Substance: PREGABALIN
     Indication: PERSONALITY DISORDER
     Dosage: 300-450 MG,QD
     Route: 065

REACTIONS (8)
  - Self esteem decreased [Recovering/Resolving]
  - Off label use [Unknown]
  - Feeling abnormal [Unknown]
  - Drug effect incomplete [Unknown]
  - Sedation [Unknown]
  - Depression [Recovering/Resolving]
  - Somnolence [Unknown]
  - Mental impairment [Recovering/Resolving]
